FAERS Safety Report 14571372 (Version 1)
Quarter: 2018Q1

REPORT INFORMATION
  Report Type: Spontaneous
  Country: US (occurrence: US)
  Receive Date: 20180223
  Receipt Date: 20180223
  Transmission Date: 20180509
  Serious: No
  Sender: FDA-Public Use
  Company Number: None

PATIENT
  Age: 44 Year
  Sex: Female

DRUGS (2)
  1. METHYLPHENIDATE 20MG AND 10MG ER [Suspect]
     Active Substance: METHYLPHENIDATE
     Indication: NARCOLEPSY
     Dates: start: 201709, end: 201801
  2. METADATE CD [Suspect]
     Active Substance: METHYLPHENIDATE HYDROCHLORIDE
     Dates: start: 201705, end: 201709

REACTIONS (2)
  - Drug effect variable [None]
  - Product substitution issue [None]
